FAERS Safety Report 6626699-7 (Version None)
Quarter: 2010Q1

REPORT INFORMATION
  Report Type: 
  Country: None (occurrence: None)
  Receive Date: 20100308
  Receipt Date: 20100222
  Transmission Date: 20100710
  Serious: Yes (Hospitalization)
  Sender: FDA-Public Use
  Company Number: 2010AP000360

PATIENT
  Sex: Female

DRUGS (1)
  1. MELOXICAM [Suspect]
     Dosage: 7.5 MG;TAB;PO;BID ; 7.5 MG;QD
     Route: 048
     Dates: start: 20100111

REACTIONS (2)
  - DYSPNOEA [None]
  - SWELLING FACE [None]
